FAERS Safety Report 6848503-4 (Version None)
Quarter: 2010Q3

REPORT INFORMATION
  Report Type: 
  Country: None (occurrence: None)
  Receive Date: 20100716
  Receipt Date: 20100707
  Transmission Date: 20110219
  Serious: Yes (Hospitalization, Disabling)
  Sender: FDA-Public Use
  Company Number: US-JNJFOC-20100701698

PATIENT
  Age: 55 Year
  Sex: Female
  Weight: 89 kg

DRUGS (7)
  1. NUCYNTA [Suspect]
     Indication: PAIN
     Dosage: EVERY 4-6 HOURS
     Route: 048
  2. PAROXETINE HCL [Suspect]
     Indication: MOOD SWINGS
     Dosage: ONCE DAILY
     Route: 048
  3. RANITIDINE [Concomitant]
     Route: 065
  4. CYTOMEL [Concomitant]
     Route: 065
  5. FLUTICASONE [Concomitant]
     Route: 065
  6. TOBRADEX [Concomitant]
     Route: 065
  7. CLONIDINE [Concomitant]
     Route: 065

REACTIONS (3)
  - BLOOD PRESSURE INCREASED [None]
  - DRUG TOXICITY [None]
  - SEROTONIN SYNDROME [None]
